FAERS Safety Report 12740882 (Version 1)
Quarter: 2016Q3

REPORT INFORMATION
  Report Type: Report from Study
  Country: US (occurrence: US)
  Receive Date: 20160914
  Receipt Date: 20160914
  Transmission Date: 20161109
  Serious: No
  Sender: FDA-Public Use
  Company Number: US-AMGEN-USASL2016116790

PATIENT
  Age: 64 Year
  Sex: Male
  Weight: 58.96 kg

DRUGS (2)
  1. ENBREL [Suspect]
     Active Substance: ETANERCEPT
     Indication: PSORIASIS
     Dosage: 25 MG, QWK
     Route: 065
  2. ENBREL [Suspect]
     Active Substance: ETANERCEPT
     Indication: PSORIATIC ARTHROPATHY
     Dosage: 25 MG, 2 TIMES/WK
     Route: 065

REACTIONS (4)
  - Therapeutic response decreased [Unknown]
  - Intentional product misuse [Unknown]
  - Condition aggravated [Unknown]
  - Feeling abnormal [Unknown]
